FAERS Safety Report 12222070 (Version 1)
Quarter: 2016Q1

REPORT INFORMATION
  Report Type: Spontaneous
  Country: NO (occurrence: NO)
  Receive Date: 20160330
  Receipt Date: 20160330
  Transmission Date: 20160526
  Serious: Yes (Disabling)
  Sender: FDA-Public Use
  Company Number: NO-ASTRAZENECA-2016SE31458

PATIENT
  Age: 18 Year
  Sex: Female
  Weight: 94 kg

DRUGS (10)
  1. NOZINAN [Suspect]
     Active Substance: LEVOMEPROMAZINE
     Indication: INSOMNIA
     Route: 065
     Dates: start: 2014, end: 2015
  2. RITALIN [Concomitant]
     Active Substance: METHYLPHENIDATE HYDROCHLORIDE
     Indication: ATTENTION DEFICIT/HYPERACTIVITY DISORDER
     Dates: start: 20150323
  3. FLUOXETINE [Concomitant]
     Active Substance: FLUOXETINE HYDROCHLORIDE
     Indication: DEPRESSION
     Dates: start: 2014, end: 2014
  4. ESCITALOPRAM [Concomitant]
     Active Substance: ESCITALOPRAM OXALATE
     Indication: DEPRESSION
     Dates: start: 2014, end: 2016
  5. NOZINAN [Suspect]
     Active Substance: LEVOMEPROMAZINE
     Indication: INSOMNIA
     Dosage: FROM 25MG TO 50MG TO 75MG TO 10MG TO 5MG
     Route: 065
  6. SOBRIL [Concomitant]
     Active Substance: OXAZEPAM
     Indication: PANIC ATTACK
     Dates: start: 2015
  7. TOLVON [Concomitant]
     Active Substance: MIANSERIN
     Indication: DEPRESSION
     Dates: start: 2014, end: 2014
  8. VENLAFAXINE [Concomitant]
     Active Substance: VENLAFAXINE HYDROCHLORIDE
     Indication: DEPRESSION
     Dates: start: 2011, end: 2013
  9. SEROQUEL [Suspect]
     Active Substance: QUETIAPINE FUMARATE
     Indication: INSOMNIA
     Route: 048
     Dates: start: 2011, end: 2013
  10. TRUXAL [Suspect]
     Active Substance: CHLORPROTHIXENE
     Indication: INSOMNIA
     Dosage: INCREASED FROM 25MG TO 75MG, EVERY DAY
     Route: 065
     Dates: start: 2013, end: 2014

REACTIONS (9)
  - Insulin resistance [Not Recovered/Not Resolved]
  - Memory impairment [Not Recovered/Not Resolved]
  - Apathy [Not Recovered/Not Resolved]
  - Decreased interest [Not Recovered/Not Resolved]
  - Toxicity to various agents [Not Recovered/Not Resolved]
  - Somnolence [Not Recovered/Not Resolved]
  - Eating disorder [Not Recovered/Not Resolved]
  - Weight increased [Not Recovered/Not Resolved]
  - Hypersomnia [Not Recovered/Not Resolved]

NARRATIVE: CASE EVENT DATE: 2011
